FAERS Safety Report 9518678 (Version 14)
Quarter: 2017Q1

REPORT INFORMATION
  Report Type: Report from Study
  Country: BR (occurrence: BR)
  Receive Date: 20130912
  Receipt Date: 20170213
  Transmission Date: 20170429
  Serious: Yes (Life-Threatening, Hospitalization, Other)
  Sender: FDA-Public Use
  Company Number: PHHY2013BR100414

PATIENT
  Age: 17 Year
  Sex: Male
  Weight: 62 kg

DRUGS (10)
  1. FOLIC ACID. [Concomitant]
     Active Substance: FOLIC ACID
     Indication: SICKLE CELL ANAEMIA
     Dosage: 5 MG, QD
     Route: 048
  2. EXJADE [Suspect]
     Active Substance: DEFERASIROX
     Dosage: 15 MG/KG, QD (1000 MG)
     Route: 048
  3. ZOLOFT [Concomitant]
     Active Substance: SERTRALINE HYDROCHLORIDE
     Indication: PRODUCT USED FOR UNKNOWN INDICATION
     Route: 065
  4. DESFERAL [Concomitant]
     Active Substance: DEFEROXAMINE MESYLATE
     Indication: PRODUCT USED FOR UNKNOWN INDICATION
     Route: 065
  5. DRAMAMINE [Concomitant]
     Active Substance: DIMENHYDRINATE
     Indication: PRODUCT USED FOR UNKNOWN INDICATION
     Route: 065
  6. HYDREA [Concomitant]
     Active Substance: HYDROXYUREA
     Indication: SICKLE CELL ANAEMIA
     Dosage: 3 DF, QD
     Route: 048
  7. EXJADE [Suspect]
     Active Substance: DEFERASIROX
     Indication: SICKLE CELL ANAEMIA
     Dosage: 10 MG/KG, QD (2 DF OF 250 MG)
     Route: 048
     Dates: start: 20120413
  8. EXJADE [Suspect]
     Active Substance: DEFERASIROX
     Dosage: 25 MG/KG, QD (3 DF OF 500 MG)
     Route: 048
  9. AAS [Concomitant]
     Active Substance: ASPIRIN
     Indication: PRODUCT USED FOR UNKNOWN INDICATION
     Dosage: 1 DF, QD
     Route: 048
     Dates: start: 201209, end: 201309
  10. ALENDRONATE [Concomitant]
     Active Substance: ALENDRONATE SODIUM
     Indication: PRODUCT USED FOR UNKNOWN INDICATION
     Route: 065

REACTIONS (35)
  - Lung disorder [Unknown]
  - Pulmonary thrombosis [Recovering/Resolving]
  - Sickle cell anaemia with crisis [Recovering/Resolving]
  - Haemoglobin decreased [Recovered/Resolved]
  - Arthralgia [Recovering/Resolving]
  - Scratch [Recovering/Resolving]
  - Vomiting [Recovering/Resolving]
  - Malaise [Unknown]
  - Abasia [Recovering/Resolving]
  - Vasoconstriction [Unknown]
  - Pyrexia [Recovering/Resolving]
  - Contusion [Recovering/Resolving]
  - Pneumonia [Unknown]
  - Back pain [Recovering/Resolving]
  - Hypoxia [Unknown]
  - Mental disorder [Recovering/Resolving]
  - Candida infection [Recovering/Resolving]
  - Dyspnoea [Recovering/Resolving]
  - Tachycardia [Recovering/Resolving]
  - Bacterial infection [Recovering/Resolving]
  - Aspergillus infection [Recovering/Resolving]
  - Serum ferritin increased [Recovering/Resolving]
  - Pulmonary hypertension [Recovering/Resolving]
  - Fall [Unknown]
  - Cardiac disorder [Unknown]
  - Ischaemia [Unknown]
  - Haemoglobin decreased [Unknown]
  - Lethargy [Recovering/Resolving]
  - Respiratory arrest [Recovering/Resolving]
  - Pain [Unknown]
  - Pulmonary embolism [Unknown]
  - Infarction [Recovering/Resolving]
  - Vena cava thrombosis [Recovering/Resolving]
  - Fatigue [Recovering/Resolving]
  - Headache [Recovering/Resolving]

NARRATIVE: CASE EVENT DATE: 201209
